FAERS Safety Report 20472220 (Version 1)
Quarter: 2022Q1

REPORT INFORMATION
  Report Type: Other
  Country: BE (occurrence: None)
  Receive Date: 20220214
  Receipt Date: 20220214
  Transmission Date: 20220423
  Serious: Yes (Other)
  Sender: FDA-Public Use
  Company Number: BE-Square-000048

PATIENT
  Age: 41 Year
  Sex: Female

DRUGS (11)
  1. ACYCLOVIR [Suspect]
     Active Substance: ACYCLOVIR
     Indication: Oral herpes
     Dosage: 400 MG FIVE TIMES A DAY
     Route: 048
  2. BRIVUDINE [Concomitant]
     Active Substance: BRIVUDINE
     Indication: Product used for unknown indication
     Dosage: 0,1% DROPS 10 TIMES A DAY
  3. METHYLPREDNISOLONE [Concomitant]
     Active Substance: METHYLPREDNISOLONE
     Indication: Product used for unknown indication
     Dosage: 4 MG PER DAY
  4. RUXOLITINIB [Concomitant]
     Active Substance: RUXOLITINIB
     Indication: Product used for unknown indication
     Dosage: 10 MG
  5. ACYCLOVIR [Suspect]
     Active Substance: ACYCLOVIR
     Indication: Ophthalmic herpes zoster
     Dosage: 400 MG FIVE TIMES A DAY
     Route: 048
  6. ACYCLOVIR [Suspect]
     Active Substance: ACYCLOVIR
     Indication: Oral herpes
     Dosage: 400 MG TWO TIMES A DAY
     Route: 048
  7. ACYCLOVIR [Suspect]
     Active Substance: ACYCLOVIR
     Indication: Ophthalmic herpes zoster
     Dosage: 400 MG TWO TIMES A DAY
     Route: 048
  8. ACYCLOVIR [Suspect]
     Active Substance: ACYCLOVIR
     Indication: Oral herpes
     Dosage: 800 MG FIVE TIMES A DAY
     Route: 048
  9. ACYCLOVIR [Suspect]
     Active Substance: ACYCLOVIR
     Indication: Ophthalmic herpes zoster
     Dosage: 800 MG FIVE TIMES A DAY
     Route: 048
  10. BRIVUDINE [Concomitant]
     Active Substance: BRIVUDINE
     Indication: Product used for unknown indication
     Dosage: 0,1% DROPS 5 TIMES A DAY
  11. METHYLPREDNISOLONE [Concomitant]
     Active Substance: METHYLPREDNISOLONE
     Indication: Product used for unknown indication
     Dosage: 72 MG PER DAY
     Route: 048

REACTIONS (5)
  - Herpes ophthalmic [Recovered/Resolved]
  - Disease progression [Recovered/Resolved]
  - Ulcerative keratitis [Recovered/Resolved]
  - Disease recurrence [Recovered/Resolved]
  - Drug resistance [Unknown]
